FAERS Safety Report 6210888-X (Version None)
Quarter: 2009Q2

REPORT INFORMATION
  Report Type: 
  Country: None (occurrence: None)
  Receive Date: 20090601
  Receipt Date: 20090522
  Transmission Date: 20091009
  Serious: Yes (Other)
  Sender: FDA-Public Use
  Company Number: US-JNJCH-2009014725

PATIENT
  Age: 78 Year
  Sex: Female

DRUGS (1)
  1. LISTERINE TOOTH DEFENSE [Suspect]
     Indication: DENTAL DISORDER PROPHYLAXIS
     Dosage: TEXT:TEASPOONFUL 1 OR 2 TIMES DAILY
     Route: 048
     Dates: start: 20080422, end: 20090522

REACTIONS (3)
  - DRY MOUTH [None]
  - DYSPNOEA [None]
  - HYPERSENSITIVITY [None]
